FAERS Safety Report 6273305-X (Version None)
Quarter: 2009Q3

REPORT INFORMATION
  Report Type: 
  Country: None (occurrence: None)
  Receive Date: 20090720
  Receipt Date: 20090709
  Transmission Date: 20100115
  Serious: Yes (Life-Threatening, Hospitalization)
  Sender: FDA-Public Use
  Company Number: CN-ROCHE-642954

PATIENT
  Sex: Male
  Weight: 75 kg

DRUGS (10)
  1. CAPECITABINE [Suspect]
     Indication: GASTRIC CANCER
     Dosage: FREQUENCY-D1-14Q3W, UNIT: 1500/F MG, THERAPY PERMANENTLY DISCONTINUED.
     Route: 048
     Dates: start: 20090706, end: 20090713
  2. CISPLATIN [Suspect]
     Indication: GASTRIC CANCER
     Dosage: FORM: INFUSION, UNIT: 118.2 MG, THERAPY PERMANENTLY DISCONTINUED.
     Route: 042
     Dates: start: 20090706, end: 20090713
  3. OMEPRAZOLE [Concomitant]
     Dates: start: 20090708
  4. AZASETRON [Concomitant]
     Dates: start: 20090708, end: 20090708
  5. GLUTATHIONE [Concomitant]
     Dates: start: 20090708, end: 20090708
  6. PHOSPHATIDYLCHOLINE [Concomitant]
     Dosage: DRUG: POLYENE PHOSPHATIDYLCHOLINE.
     Dates: start: 20090708, end: 20090708
  7. CEFOTIAM [Concomitant]
     Dates: start: 20090708, end: 20090708
  8. AMINO ACID INJ [Concomitant]
     Dosage: DRUG: COMPOUND AMINO ACID (18AA-IV)
     Dates: start: 20090702
  9. FAT EMULSION [Concomitant]
     Dosage: DRUG: FAT EMULSION (C14-24)
     Dates: start: 20090712
  10. BLINDED BEVACIZUMAB [Suspect]
     Indication: GASTRIC CANCER
     Dosage: DOSE FORM: INFUSION, THERAPY PERMANENTLY DISCONTINUED.
     Route: 042
     Dates: start: 20090706, end: 20090713

REACTIONS (2)
  - GASTROPLEURAL FISTULA [None]
  - PNEUMOTHORAX [None]
